FAERS Safety Report 19204866 (Version 1)
Quarter: 2021Q2

REPORT INFORMATION
  Report Type: Spontaneous
  Country: US (occurrence: US)
  Receive Date: 20210430
  Receipt Date: 20210430
  Transmission Date: 20210717
  Serious: Yes (Life-Threatening, Hospitalization)
  Sender: FDA-Public Use
  Company Number: None

PATIENT
  Age: 49 Year
  Sex: Female
  Weight: 65.25 kg

DRUGS (2)
  1. NURTEC ODT [Suspect]
     Active Substance: RIMEGEPANT SULFATE
     Indication: MIGRAINE
     Dates: start: 20200301, end: 20210424
  2. AJOVY [Suspect]
     Active Substance: FREMANEZUMAB-VFRM
     Indication: MIGRAINE
     Dosage: ?          OTHER FREQUENCY:MONTHLY INJECTION;?
     Route: 030
     Dates: start: 20190101, end: 20210420

REACTIONS (10)
  - Immune system disorder [None]
  - Impaired healing [None]
  - Blister [None]
  - Postoperative wound complication [None]
  - Hypersensitivity [None]
  - Hormone level abnormal [None]
  - Swelling [None]
  - Pruritus [None]
  - Alopecia [None]
  - Haemorrhage [None]

NARRATIVE: CASE EVENT DATE: 20210217
